FAERS Safety Report 20237224 (Version 2)
Quarter: 2022Q2

REPORT INFORMATION
  Report Type: Spontaneous
  Country: AT (occurrence: AT)
  Receive Date: 20211228
  Receipt Date: 20220416
  Transmission Date: 20220721
  Serious: Yes (Hospitalization)
  Sender: FDA-Public Use
  Company Number: AT-ROCHE-2972434

PATIENT
  Age: 73 Year
  Sex: Female
  Weight: 53 kg

DRUGS (33)
  1. TRASTUZUMAB [Suspect]
     Active Substance: TRASTUZUMAB
     Indication: HER2 positive breast cancer
     Dosage: 354 MILLIGRAM, Q3WK
     Route: 041
     Dates: start: 20160629
  2. TRASTUZUMAB [Suspect]
     Active Substance: TRASTUZUMAB
     Dosage: 372 MILLIGRAM, Q3WK
     Route: 041
     Dates: start: 20180719, end: 20200227
  3. TRASTUZUMAB [Suspect]
     Active Substance: TRASTUZUMAB
     Dosage: 372 MILLIGRAM, Q3WK
     Route: 041
     Dates: start: 20200227, end: 20200520
  4. XGEVA [Suspect]
     Active Substance: DENOSUMAB
     Indication: HER2 positive breast cancer
     Dosage: 120 MILLIGRAM, Q4WK
     Route: 058
     Dates: start: 20161121, end: 202101
  5. XGEVA [Suspect]
     Active Substance: DENOSUMAB
     Dosage: 120 MILLIGRAM, Q4WK
     Route: 058
     Dates: start: 20161121, end: 20210126
  6. XGEVA [Suspect]
     Active Substance: DENOSUMAB
     Dosage: 120 MILLIGRAM, Q4WK
     Route: 058
     Dates: start: 20161121, end: 20210915
  7. FULVESTRANT [Suspect]
     Active Substance: FULVESTRANT
     Indication: HER2 positive breast cancer
     Dosage: 500 MILLIGRAM, Q4WK
     Route: 058
     Dates: start: 20200716
  8. DOCETAXEL [Suspect]
     Active Substance: DOCETAXEL
     Indication: HER2 positive breast cancer
     Dosage: 75 MILLIGRAM/SQ. METER, Q3WK
     Route: 042
     Dates: start: 20160629
  9. LETROZOLE [Suspect]
     Active Substance: LETROZOLE
     Indication: HER2 positive breast cancer
     Dosage: 2.5 MILLIGRAM, QD
     Route: 048
     Dates: start: 20161021, end: 20200629
  10. PALBOCICLIB [Suspect]
     Active Substance: PALBOCICLIB
     Indication: HER2 positive breast cancer
     Dosage: 100 MILLIGRAM, Q4WK
     Route: 048
     Dates: start: 202011, end: 202012
  11. PALBOCICLIB [Suspect]
     Active Substance: PALBOCICLIB
     Dosage: 75 MILLIGRAM, Q4WK
     Route: 048
     Dates: start: 202012, end: 202110
  12. PERTUZUMAB [Suspect]
     Active Substance: PERTUZUMAB
     Indication: HER2 positive breast cancer
     Dosage: 420 MILLIGRAM, Q3WK
     Route: 042
     Dates: start: 20160629
  13. PERTUZUMAB [Suspect]
     Active Substance: PERTUZUMAB
     Dosage: 420 MILLIGRAM, Q3WK
     Route: 042
     Dates: start: 20180719, end: 20200227
  14. PERTUZUMAB [Suspect]
     Active Substance: PERTUZUMAB
     Dosage: 420 MILLIGRAM, Q3WK
     Route: 042
     Dates: start: 20200227, end: 20200520
  15. RIBOCICLIB [Suspect]
     Active Substance: RIBOCICLIB
     Indication: HER2 positive breast cancer
     Dosage: 600 MILLIGRAM
     Route: 048
     Dates: start: 20200716, end: 20201024
  16. RIBOCICLIB [Suspect]
     Active Substance: RIBOCICLIB
     Dosage: 75 MILLIGRAM
     Route: 048
     Dates: start: 202012, end: 202110
  17. NEBIVOLOL HYDROCHLORIDE [Concomitant]
     Active Substance: NEBIVOLOL HYDROCHLORIDE
     Dosage: UNK
     Dates: start: 20170115
  18. METHYLPREDNISOLONE ACEPONATE [Concomitant]
     Active Substance: METHYLPREDNISOLONE ACEPONATE
     Indication: Palmar-plantar erythrodysaesthesia syndrome
     Dosage: UNK
     Dates: start: 20201111
  19. ELO MEL [Concomitant]
     Dosage: UNK
     Dates: start: 20210908, end: 20210908
  20. OSPEN [PHENOXYMETHYLPENICILLIN] [Concomitant]
     Indication: Osteonecrosis of jaw
     Dosage: UNK
     Dates: start: 20210114
  21. DIPRODERM [BETAMETHASONE DIPROPIONATE] [Concomitant]
     Indication: Rash
     Dosage: UNK
     Dates: start: 20180621
  22. EUTHYROX [Concomitant]
     Active Substance: LEVOTHYROXINE SODIUM
     Dosage: UNK
     Dates: start: 20210223
  23. AMOXICILLIN\CLAVULANATE POTASSIUM [Concomitant]
     Active Substance: AMOXICILLIN\CLAVULANATE POTASSIUM
     Indication: Osteonecrosis of jaw
     Dosage: UNK
     Dates: start: 20210915
  24. ASPIRIN [Concomitant]
     Active Substance: ASPIRIN
     Dosage: UNK
     Dates: start: 20170115
  25. AMPICILLIN [Concomitant]
     Active Substance: AMPICILLIN
     Indication: Osteonecrosis of jaw
     Dosage: UNK
     Dates: start: 20210915, end: 20210915
  26. ENOXAPARIN SODIUM [Concomitant]
     Active Substance: ENOXAPARIN SODIUM
     Dosage: UNK
     Dates: start: 20210915, end: 20210915
  27. LISINOPRIL [Concomitant]
     Active Substance: LISINOPRIL
     Dosage: UNK
     Dates: start: 20170115
  28. BETAISODONA [Concomitant]
     Active Substance: POVIDONE-IODINE
     Indication: Paronychia
     Dosage: UNK
     Dates: start: 20201111
  29. NOVALGIN (METAMIZOLE SODIUM) [Concomitant]
     Active Substance: METAMIZOLE SODIUM
     Indication: Osteonecrosis of jaw
     Dosage: UNK
     Dates: start: 20210915, end: 20210915
  30. MICRO-KALIUM [Concomitant]
     Dosage: UNK
  31. ATORVASTATIN [Concomitant]
     Active Substance: ATORVASTATIN
     Indication: Hypercholesterolaemia
     Dosage: 20 MILLIGRAM
     Route: 048
     Dates: start: 201701, end: 201701
  32. HYDROMORPHONE HYDROCHLORIDE [Concomitant]
     Active Substance: HYDROMORPHONE HYDROCHLORIDE
     Dosage: UNK
  33. PANTOPRAZOLE SODIUM [Concomitant]
     Active Substance: PANTOPRAZOLE SODIUM
     Dosage: UNK

REACTIONS (3)
  - Hypercalcaemia [Recovered/Resolved]
  - Pain [Recovering/Resolving]
  - Off label use [Unknown]

NARRATIVE: CASE EVENT DATE: 20210915
